FAERS Safety Report 10230449 (Version 2)
Quarter: 2014Q2

REPORT INFORMATION
  Report Type: Spontaneous
  Country: US (occurrence: US)
  Receive Date: 20140611
  Receipt Date: 20140611
  Transmission Date: 20141212
  Serious: No
  Sender: FDA-Public Use
  Company Number: US-INCYTE CORPORATION-2014IN000496

PATIENT
  Age: 72 Year
  Sex: Male
  Weight: 77.3 kg

DRUGS (3)
  1. JAKAFI [Suspect]
     Indication: MYELOFIBROSIS
     Dosage: 10 MG, BID
     Route: 048
  2. JAKAFI [Suspect]
     Dosage: 15 MG, BID
     Route: 048
  3. UNSPECIFIED HERBAL [Concomitant]

REACTIONS (2)
  - White blood cell count increased [Not Recovered/Not Resolved]
  - Productive cough [Not Recovered/Not Resolved]
